FAERS Safety Report 10877869 (Version 1)
Quarter: 2015Q1

REPORT INFORMATION
  Report Type: Spontaneous
  Country: DE (occurrence: None)
  Receive Date: 20150224
  Receipt Date: 20150224
  Transmission Date: 20150721
  Serious: Yes (Other)
  Sender: FDA-Public Use
  Company Number: 2015VER00086

PATIENT
  Age: 34 Year
  Sex: Female

DRUGS (5)
  1. 70% GLYCOLIC ACID (70% GLYCOLIC ACID) [Suspect]
     Active Substance: GLYCOLIC ACID
  2. 8% GLYCOLIC ACID [Suspect]
     Active Substance: GLYCOLIC ACID
  3. ISOTRETINOIN (ISOTRETINOIN) UNKNOWN [Suspect]
     Active Substance: ISOTRETINOIN
     Indication: SKIN DISORDER
     Route: 048
  4. BLAND EMOLLIENTS (UNSPECIFIED) [Concomitant]
  5. SUNSCREENS (UNSPECIFIED) [Concomitant]

REACTIONS (5)
  - Pain [None]
  - Skin hyperpigmentation [None]
  - Scar [None]
  - Skin erosion [None]
  - Erythema [None]
